FAERS Safety Report 9990749 (Version 1)
Quarter: 2014Q1

REPORT INFORMATION
  Report Type: Spontaneous
  Country: US (occurrence: None)
  Receive Date: 20140307
  Receipt Date: 20140307
  Transmission Date: 20141002
  Serious: Yes (Other)
  Sender: FDA-Public Use
  Company Number: None

PATIENT
  Age: 38 Year
  Sex: Female
  Weight: 86 kg

DRUGS (1)
  1. BENLYSTA [Suspect]
     Dosage: OCER A YEAR, 800 MG, MONTHLY, IV
     Route: 042

REACTIONS (1)
  - White blood cell count decreased [None]
